FAERS Safety Report 8228647-5 (Version None)
Quarter: 2012Q1

REPORT INFORMATION
  Report Type: 
  Country: None (occurrence: None)
  Receive Date: 20120322
  Receipt Date: 20110210
  Transmission Date: 20120608
  Serious: Yes (Other)
  Sender: FDA-Public Use
  Company Number: US-BRISTOL-MYERS SQUIBB COMPANY-15546468

PATIENT
  Age: 56 Year
  Sex: Male

DRUGS (1)
  1. ERBITUX [Suspect]
     Indication: COLORECTAL CANCER METASTATIC
     Dosage: RECEIVED 11 WEEKLY DOSES AND AS SINGLE DOSE ON 07-JAN-2011, 14-JAN-2011, 28-JAN-2011, 04-FEB-2011.
     Dates: start: 20100813

REACTIONS (1)
  - NEOPLASM MALIGNANT [None]
